FAERS Safety Report 7325490-6 (Version None)
Quarter: 2011Q1

REPORT INFORMATION
  Report Type: 
  Country: None (occurrence: None)
  Receive Date: 20110302
  Receipt Date: 20110223
  Transmission Date: 20110831
  Serious: Yes (Hospitalization, Other)
  Sender: FDA-Public Use
  Company Number: GR-SANOFI-AVENTIS-2011SA011595

PATIENT
  Age: 13 Day

DRUGS (3)
  1. LASIX [Suspect]
     Route: 064
  2. CLEXANE [Suspect]
     Route: 064
  3. SILDENAFIL CITRATE [Suspect]
     Indication: EISENMENGER'S SYNDROME
     Route: 064
     Dates: start: 20091224, end: 20100301

REACTIONS (2)
  - NECROTISING COLITIS [None]
  - DRUG EXPOSURE DURING PREGNANCY [None]
